FAERS Safety Report 17315828 (Version 9)
Quarter: 2020Q4

REPORT INFORMATION
  Report Type: Spontaneous
  Country: US (occurrence: US)
  Receive Date: 20200124
  Receipt Date: 20201230
  Transmission Date: 20210113
  Serious: No
  Sender: FDA-Public Use
  Company Number: US-PFIZER INC-2020031178

PATIENT
  Age: 64 Year
  Sex: Female
  Weight: 64 kg

DRUGS (7)
  1. LYRICA [Suspect]
     Active Substance: PREGABALIN
     Indication: RESTLESS LEGS SYNDROME
  2. LYRICA [Suspect]
     Active Substance: PREGABALIN
     Indication: PARAESTHESIA
  3. LYRICA [Suspect]
     Active Substance: PREGABALIN
     Indication: NEURALGIA
     Dosage: 200 MG
     Route: 048
  4. LYRICA [Suspect]
     Active Substance: PREGABALIN
     Indication: NEUROPATHY PERIPHERAL
     Dosage: 300 MG
     Route: 048
  5. LYRICA [Suspect]
     Active Substance: PREGABALIN
     Indication: HYPOAESTHESIA
     Dosage: 2X/DAY (300 WITH WATER WHEN GETS UP AND GOES TO BED)
  6. LYRICA [Suspect]
     Active Substance: PREGABALIN
     Indication: HEADACHE
     Dosage: 100 MG
     Route: 048
  7. LYRICA [Suspect]
     Active Substance: PREGABALIN
     Indication: URTICARIA
     Dosage: 300 MG, 2X/DAY (IN THE MORNING AND AT NIGHT)
     Route: 048
     Dates: start: 2012, end: 20201110

REACTIONS (15)
  - Agitation [Unknown]
  - Speech disorder [Unknown]
  - Pruritus [Unknown]
  - Memory impairment [Unknown]
  - Drug ineffective [Unknown]
  - Drug effective for unapproved indication [Unknown]
  - Dizziness [Unknown]
  - Illness [Unknown]
  - Urticaria [Not Recovered/Not Resolved]
  - Symptom recurrence [Not Recovered/Not Resolved]
  - Off label use [Unknown]
  - Pancreatic disorder [Unknown]
  - Burning sensation [Not Recovered/Not Resolved]
  - Pain [Unknown]
  - Anxiety [Unknown]

NARRATIVE: CASE EVENT DATE: 20200423
